FAERS Safety Report 4498582-7 (Version None)
Quarter: 2004Q4

REPORT INFORMATION
  Report Type: 
  Country: None (occurrence: None)
  Receive Date: 20041108
  Receipt Date: 20041101
  Transmission Date: 20050328
  Serious: Yes (Other)
  Sender: FDA-Public Use
  Company Number: 2004241876US

PATIENT
  Sex: Female

DRUGS (3)
  1. PROVERA [Suspect]
     Indication: HORMONE REPLACEMENT THERAPY
     Dates: start: 19880101, end: 20011001
  2. PREMARIN [Suspect]
     Indication: HORMONE REPLACEMENT THERAPY
  3. FEMHRT [Suspect]
     Indication: HORMONE REPLACEMENT THERAPY
     Dates: start: 20001001, end: 20011101

REACTIONS (2)
  - ADVERSE EVENT [None]
  - BREAST CANCER FEMALE [None]
